FAERS Safety Report 7043938-1 (Version None)
Quarter: 2010Q4

REPORT INFORMATION
  Report Type: 
  Country: None (occurrence: None)
  Receive Date: 20101008
  Receipt Date: 20101008
  Transmission Date: 20110411
  Serious: Yes (Life-Threatening)
  Sender: FDA-Public Use
  Company Number: None

PATIENT
  Age: 53 Year
  Sex: Female
  Weight: 50.8029 kg

DRUGS (1)
  1. CLIMARA PRO [Suspect]
     Indication: MENOPAUSAL SYMPTOMS
     Dosage: 1 PATCH CHANGE EVERY 7 DAYS TRANSDERMAL
     Route: 062
     Dates: start: 20100226, end: 20100703

REACTIONS (2)
  - DEEP VEIN THROMBOSIS [None]
  - DRUG EFFECT INCREASED [None]
